FAERS Safety Report 13645356 (Version 3)
Quarter: 2017Q3

REPORT INFORMATION
  Report Type: Spontaneous
  Country: DE (occurrence: DE)
  Receive Date: 20170612
  Receipt Date: 20170811
  Transmission Date: 20171127
  Serious: Yes (Other)
  Sender: FDA-Public Use
  Company Number: DE-009507513-1706DEU005157

PATIENT
  Age: 38 Year
  Sex: Female

DRUGS (2)
  1. IMPLANON [Suspect]
     Active Substance: ETONOGESTREL
     Indication: CONTRACEPTION
     Dosage: UNK
     Route: 030
     Dates: start: 200909, end: 20160203
  2. FOLIO [Concomitant]
     Active Substance: FOLIC ACID
     Dosage: ONCE DAILY

REACTIONS (2)
  - Abortion induced [Unknown]
  - Maternal exposure before pregnancy [Recovered/Resolved]

NARRATIVE: CASE EVENT DATE: 201611
